FAERS Safety Report 16393770 (Version 2)
Quarter: 2019Q2

REPORT INFORMATION
  Report Type: Spontaneous
  Country: US (occurrence: US)
  Receive Date: 20190605
  Receipt Date: 20190627
  Transmission Date: 20190711
  Serious: No
  Sender: FDA-Public Use
  Company Number: US-009507513-1906USA001042

PATIENT
  Sex: Female

DRUGS (1)
  1. NEXPLANON [Suspect]
     Active Substance: ETONOGESTREL
     Dosage: IMPLANT, FOR APPROXIMATELY A YEAR AND A HALF
     Route: 059

REACTIONS (5)
  - Depressed mood [Unknown]
  - Menstruation irregular [Unknown]
  - Complication associated with device [Recovered/Resolved]
  - Adverse event [Not Recovered/Not Resolved]
  - Hormone level abnormal [Unknown]
